FAERS Safety Report 5417247-8 (Version None)
Quarter: 2007Q3

REPORT INFORMATION
  Report Type: 
  Country: None (occurrence: None)
  Receive Date: 20070816
  Receipt Date: 20070803
  Transmission Date: 20080115
  Serious: Yes (Hospitalization, Other)
  Sender: FDA-Public Use
  Company Number: US-SHR-US-2007-002460

PATIENT
  Age: 58 Year
  Sex: Female

DRUGS (3)
  1. BETASERON [Suspect]
     Dosage: 8 MIU, EVERY 2D
     Route: 058
     Dates: start: 20050201, end: 20060501
  2. BETASERON [Suspect]
     Dosage: 8 MIU, EVERY 2D
     Route: 058
     Dates: start: 20060601
  3. VITAMIN B-12 [Concomitant]
     Indication: ANAEMIA

REACTIONS (10)
  - BLINDNESS [None]
  - CARDIAC DISORDER [None]
  - CHILLS [None]
  - ORAL INFECTION [None]
  - PERIPHERAL COLDNESS [None]
  - PNEUMONIA [None]
  - RASH [None]
  - SKIN IRRITATION [None]
  - TOOTH DISORDER [None]
  - URINARY INCONTINENCE [None]
